FAERS Safety Report 10741190 (Version 1)
Quarter: 2015Q1

REPORT INFORMATION
  Report Type: Spontaneous
  Country: US (occurrence: None)
  Receive Date: 20150123
  Receipt Date: 20150123
  Transmission Date: 20150721
  Serious: Yes (Death, Hospitalization)
  Sender: FDA-Public Use
  Company Number: 2015FE00122

PATIENT
  Age: 28 Year
  Sex: Female

DRUGS (1)
  1. DESMOPRESSIN [Suspect]
     Active Substance: DESMOPRESSIN
     Indication: DIABETES INSIPIDUS

REACTIONS (3)
  - Vomiting [None]
  - Hyponatraemic encephalopathy [None]
  - Respiratory arrest [None]
